FAERS Safety Report 9569216 (Version 1)
Quarter: 2013Q3

REPORT INFORMATION
  Report Type: Spontaneous
  Country: US (occurrence: US)
  Receive Date: 20130930
  Receipt Date: 20130930
  Transmission Date: 20140515
  Serious: No
  Sender: FDA-Public Use
  Company Number: US-AMGEN-USASP2013058228

PATIENT
  Age: 59 Year
  Sex: Male

DRUGS (12)
  1. ENBREL [Suspect]
     Indication: PRODUCT USED FOR UNKNOWN INDICATION
     Dosage: 50 MG, QWK
     Route: 058
  2. EFFEXOR [Concomitant]
     Dosage: 25 MG, UNK
  3. METHOTREXATE [Concomitant]
     Dosage: 2.5 MG, UNK
  4. SYNTHROID [Concomitant]
     Dosage: 112 MUG, UNK
  5. ATENOLOL [Concomitant]
     Dosage: 25 MG, UNK
  6. NEXIUM                             /01479302/ [Concomitant]
     Dosage: 20 MG, UNK
  7. MULTI VITAMINS + MINERALS [Concomitant]
     Dosage: UNK
  8. VITAMIN D                          /00107901/ [Concomitant]
     Dosage: 400 UNIT, UNK
  9. FOLIC ACID [Concomitant]
     Dosage: UNK
  10. HYDROCODONE [Concomitant]
     Dosage: UNK
  11. HOMATROPINE [Concomitant]
     Dosage: UNK
  12. ASPIRIN [Concomitant]
     Dosage: 81 MG, UNK

REACTIONS (1)
  - Influenza like illness [Unknown]
